FAERS Safety Report 7801952-X (Version None)
Quarter: 2011Q4

REPORT INFORMATION
  Report Type: 
  Country: None (occurrence: None)
  Receive Date: 20111007
  Receipt Date: 20111007
  Transmission Date: 20120403
  Serious: Yes (Other)
  Sender: FDA-Public Use
  Company Number: None

PATIENT
  Age: 51 Year
  Sex: Female
  Weight: 55.791 kg

DRUGS (1)
  1. SIMVASTATIN [Suspect]
     Indication: BLOOD CHOLESTEROL INCREASED
     Dosage: 1 TABLET
     Route: 048
     Dates: start: 20100503, end: 20110609

REACTIONS (4)
  - PRODUCT QUALITY ISSUE [None]
  - MUSCLE STRAIN [None]
  - MUSCLE TIGHTNESS [None]
  - MYALGIA [None]
